FAERS Safety Report 8381806-3 (Version None)
Quarter: 2012Q2

REPORT INFORMATION
  Report Type: 
  Country: None (occurrence: None)
  Receive Date: 20120522
  Receipt Date: 20120522
  Transmission Date: 20120825
  Serious: Yes (Other)
  Sender: FDA-Public Use
  Company Number: None

PATIENT
  Age: 56 Year
  Sex: Female
  Weight: 61.2356 kg

DRUGS (1)
  1. CYMBALTA [Suspect]
     Indication: DEPRESSION
     Dosage: 60MG ONCE PER DAY PO
     Route: 048
     Dates: start: 20120427, end: 20120509

REACTIONS (13)
  - BEDRIDDEN [None]
  - VISION BLURRED [None]
  - NIGHTMARE [None]
  - HEART RATE INCREASED [None]
  - VISUAL IMPAIRMENT [None]
  - CHROMATURIA [None]
  - URINE ODOUR ABNORMAL [None]
  - DIZZINESS [None]
  - TINNITUS [None]
  - GAIT DISTURBANCE [None]
  - TREMOR [None]
  - IMPAIRED DRIVING ABILITY [None]
  - DRUG INTERACTION [None]
